FAERS Safety Report 15227613 (Version 1)
Quarter: 2018Q3

REPORT INFORMATION
  Report Type: Spontaneous
  Country: DE (occurrence: DE)
  Receive Date: 20180801
  Receipt Date: 20180801
  Transmission Date: 20181010
  Serious: Yes (Hospitalization, Other)
  Sender: FDA-Public Use
  Company Number: DE-VERTEX PHARMACEUTICALS-2018-005180

PATIENT
  Age: 18 Year
  Sex: Female
  Weight: 58 kg

DRUGS (9)
  1. MUCOCLEAR                          /00546002/ [Concomitant]
     Dosage: 4 ML EVERY DAY
     Route: 055
  2. OMEPRAZOLE. [Concomitant]
     Active Substance: OMEPRAZOLE
     Route: 048
  3. TOBRAMYCIN. [Concomitant]
     Active Substance: TOBRAMYCIN
     Indication: PSEUDOMONAS INFECTION
     Dosage: 160 MILLGRAM EVERY DAY
     Route: 055
  4. SEMPERA [Interacting]
     Active Substance: ITRACONAZOLE
     Indication: CYSTIC FIBROSIS
     Dosage: 300 MG EVERY DAY
     Route: 048
     Dates: start: 2017, end: 2018
  5. SALBUTAMOL [Concomitant]
     Active Substance: ALBUTEROL
     Dosage: 2 DOSAGE FORM EVERY DAY
     Route: 055
  6. KREON 25000 [Concomitant]
     Active Substance: PANCRELIPASE
     Indication: PANCREATIC FAILURE
     Route: 048
  7. FORMOTEROL [Concomitant]
     Active Substance: FORMOTEROL
     Dosage: 12 ?G MICROGRAM EVERY DAY. APPLICATION FOR A LONG TIME.
     Route: 055
  8. ORKAMBI [Suspect]
     Active Substance: IVACAFTOR\LUMACAFTOR
     Indication: CYSTIC FIBROSIS
     Dosage: 2 DOSAGE FORM EVERY 2 DAYS
     Route: 048
     Dates: start: 2017
  9. ADEK [Concomitant]
     Indication: CYSTIC FIBROSIS
     Dosage: 1 DOSAGE FORM EVERY 2 DAYS
     Route: 048

REACTIONS (7)
  - Drug interaction [Recovering/Resolving]
  - Paraesthesia [Recovering/Resolving]
  - Abdominal pain upper [Recovering/Resolving]
  - Tachycardia [Recovering/Resolving]
  - Tension headache [Recovering/Resolving]
  - Peripheral vascular disorder [Recovering/Resolving]
  - Dyspnoea [Recovering/Resolving]

NARRATIVE: CASE EVENT DATE: 20180609
